FAERS Safety Report 16907387 (Version 1)
Quarter: 2019Q4

REPORT INFORMATION
  Report Type: Spontaneous
  Country: US (occurrence: US)
  Receive Date: 20190819
  Receipt Date: 20190819
  Transmission Date: 20200122
  Serious: No
  Sender: FDA-Public Use
  Company Number: None

PATIENT
  Age: 33 Year
  Sex: Female

DRUGS (4)
  1. FENTANYL. [Concomitant]
     Active Substance: FENTANYL
  2. ZOFRAN [Concomitant]
     Active Substance: ONDANSETRON HYDROCHLORIDE
  3. PREDNISONE. [Concomitant]
     Active Substance: PREDNISONE
  4. MESNEX [Suspect]
     Active Substance: MESNA
     Indication: MALIGNANT CONNECTIVE TISSUE NEOPLASM
     Dates: start: 20180928

REACTIONS (1)
  - Pollakiuria [None]

NARRATIVE: CASE EVENT DATE: 20190530
